FAERS Safety Report 6216626-9 (Version None)
Quarter: 2009Q2

REPORT INFORMATION
  Report Type: 
  Country: None (occurrence: None)
  Receive Date: 20090605
  Receipt Date: 20090601
  Transmission Date: 20091009
  Serious: Yes (Life-Threatening, Other)
  Sender: FDA-Public Use
  Company Number: PHEH2007US10118

PATIENT
  Sex: Male

DRUGS (4)
  1. CYCLOSPORINE [Suspect]
     Indication: LIVER TRANSPLANT
     Dosage: 50 MG
  2. SOY [Interacting]
  3. ALLOPURINOL [Concomitant]
  4. ASPARTAME [Concomitant]

REACTIONS (6)
  - CONJUNCTIVAL HAEMORRHAGE [None]
  - DRUG LEVEL DECREASED [None]
  - FOOD INTERACTION [None]
  - HEPATIC FAILURE [None]
  - JAUNDICE [None]
  - MALAISE [None]
